FAERS Safety Report 8332038-6 (Version None)
Quarter: 2012Q2

REPORT INFORMATION
  Report Type: 
  Country: None (occurrence: None)
  Receive Date: 20120502
  Receipt Date: 20120426
  Transmission Date: 20120825
  Serious: Yes (Life-Threatening)
  Sender: FDA-Public Use
  Company Number: US-MERCK-1204USA04386

PATIENT
  Age: 45 Year
  Sex: Female

DRUGS (2)
  1. GLIMEPIRIDE [Concomitant]
     Route: 065
  2. JANUMET [Suspect]
     Indication: DIABETES MELLITUS
     Route: 048

REACTIONS (1)
  - PANCREATIC CARCINOMA [None]
